FAERS Safety Report 7918647-4 (Version None)
Quarter: 2011Q4

REPORT INFORMATION
  Report Type: 
  Country: None (occurrence: None)
  Receive Date: 20111116
  Receipt Date: 20111109
  Transmission Date: 20120403
  Serious: Yes (Hospitalization)
  Sender: FDA-Public Use
  Company Number: JP-ABBOTT-11P-087-0840513-00

PATIENT
  Sex: Male
  Weight: 65 kg

DRUGS (8)
  1. BETAMETHASONE BUTYRATE PROPIONATE [Concomitant]
     Indication: PSORIASIS
     Route: 061
     Dates: end: 20110628
  2. HUMIRA [Suspect]
     Indication: PSORIASIS
     Route: 058
     Dates: start: 20100329, end: 20100329
  3. HUMIRA [Suspect]
     Dates: start: 20100412, end: 20110707
  4. HUMIRA [Suspect]
     Dates: start: 20110805
  5. ISONIAZID [Concomitant]
     Indication: ANTIBIOTIC PROPHYLAXIS
     Route: 048
     Dates: start: 20100309, end: 20100924
  6. MOMETASONE FUROATE [Concomitant]
     Indication: PSORIASIS
     Route: 061
     Dates: end: 20100628
  7. ASPIRIN [Concomitant]
     Indication: PSORIASIS
     Route: 061
     Dates: end: 20100628
  8. PREDNISOLONE ACETATE [Concomitant]
     Indication: PSORIASIS
     Route: 061
     Dates: end: 20100628

REACTIONS (2)
  - LIVER FUNCTION TEST ABNORMAL [None]
  - LIPID METABOLISM DISORDER [None]
